FAERS Safety Report 4501832-1 (Version None)
Quarter: 2004Q4

REPORT INFORMATION
  Report Type: 
  Country: None (occurrence: None)
  Receive Date: 20041115
  Receipt Date: 20041115
  Transmission Date: 20050328
  Serious: Yes (Life-Threatening, Hospitalization)
  Sender: FDA-Public Use
  Company Number: None

PATIENT
  Age: 47 Year
  Sex: Male
  Weight: 82.1 kg

DRUGS (5)
  1. NAPROXEN [Suspect]
  2. ALBUTEROL [Concomitant]
  3. IPRATROPIUM/ALBUTEROL INH [Concomitant]
  4. RISPERIDONE [Concomitant]
  5. ANALGESIC BALM OINT [Concomitant]

REACTIONS (2)
  - DIZZINESS [None]
  - GASTROINTESTINAL HAEMORRHAGE [None]
